FAERS Safety Report 15976092 (Version 2)
Quarter: 2019Q1

REPORT INFORMATION
  Report Type: Spontaneous
  Country: CA (occurrence: CA)
  Receive Date: 20190218
  Receipt Date: 20190318
  Transmission Date: 20190418
  Serious: Yes (Other)
  Sender: FDA-Public Use
  Company Number: CA-AMREGENT-20190251

PATIENT
  Age: 90 Year
  Sex: Male
  Weight: 61.2 kg

DRUGS (2)
  1. SODIUM CHLORIDE. [Concomitant]
     Active Substance: SODIUM CHLORIDE
     Dosage: UNKNOWN
     Route: 065
  2. VENOFER [Suspect]
     Active Substance: IRON SUCROSE
     Dosage: 300 MG ONCE
     Route: 042
     Dates: start: 20181018, end: 20181018

REACTIONS (6)
  - Blood pressure increased [Unknown]
  - Hyperhidrosis [Unknown]
  - Respiratory rate increased [Unknown]
  - Dyspnoea [Unknown]
  - Crepitations [Unknown]
  - Heart rate increased [Unknown]

NARRATIVE: CASE EVENT DATE: 20181018
